FAERS Safety Report 6912662-5 (Version None)
Quarter: 2010Q3

REPORT INFORMATION
  Report Type: 
  Country: None (occurrence: None)
  Receive Date: 20100806
  Receipt Date: 20081024
  Transmission Date: 20110219
  Serious: No
  Sender: FDA-Public Use
  Company Number: US-PFIZER INC-2008076669

PATIENT
  Sex: Female

DRUGS (5)
  1. GLIPIZIDE [Suspect]
     Indication: DIABETES MELLITUS
     Route: 048
     Dates: start: 20080622
  2. NEXIUM [Concomitant]
  3. EVISTA [Concomitant]
  4. TOPROL-XL [Concomitant]
  5. ZOCOR [Concomitant]

REACTIONS (1)
  - ALOPECIA [None]
